FAERS Safety Report 21542755 (Version 2)
Quarter: 2023Q1

REPORT INFORMATION
  Report Type: Report from Study
  Country: US (occurrence: US)
  Receive Date: 20221102
  Receipt Date: 20230303
  Transmission Date: 20230417
  Serious: No
  Sender: FDA-Public Use
  Company Number: US-ABBVIE-22K-163-4468577-00

PATIENT
  Age: 81 Year
  Sex: Female

DRUGS (3)
  1. RINVOQ [Suspect]
     Active Substance: UPADACITINIB
     Indication: Rheumatoid arthritis
     Dosage: FORM STRENGTH 15 MG
     Route: 048
     Dates: start: 20220509
  2. RINVOQ [Suspect]
     Active Substance: UPADACITINIB
     Indication: Rheumatoid arthritis
     Dosage: FORM STRENGTH 15 MG
     Route: 048
     Dates: start: 20220509
  3. RINVOQ [Suspect]
     Active Substance: UPADACITINIB
     Indication: Rheumatoid arthritis
     Route: 048
     Dates: start: 20220509

REACTIONS (2)
  - Rheumatoid arthritis [Unknown]
  - Musculoskeletal stiffness [Not Recovered/Not Resolved]

NARRATIVE: CASE EVENT DATE: 20220517
